FAERS Safety Report 19371636 (Version 1)
Quarter: 2021Q2

REPORT INFORMATION
  Report Type: Spontaneous
  Country: BR (occurrence: BR)
  Receive Date: 20210604
  Receipt Date: 20210604
  Transmission Date: 20210717
  Serious: Yes (Other)
  Sender: FDA-Public Use
  Company Number: BR-NOVOPROD-817209

PATIENT
  Age: 83 Year
  Sex: Female
  Weight: 62.2 kg

DRUGS (10)
  1. INSULATARD HM [Suspect]
     Active Substance: INSULIN HUMAN
     Indication: PRODUCT USED FOR UNKNOWN INDICATION
     Dosage: 10 IU, QD (IN THE MORNING)
     Route: 065
  2. GLICLAZIDE [Concomitant]
     Active Substance: GLICLAZIDE
     Dosage: 60 MG, BID
     Route: 065
  3. ISOSORBIDE. [Concomitant]
     Active Substance: ISOSORBIDE
     Dosage: 20 MG, BID (12/12H)
     Route: 065
  4. METFORMIN [Concomitant]
     Active Substance: METFORMIN HYDROCHLORIDE
     Dosage: 500 MG, QID
     Route: 065
  5. BISOPROLOL [Concomitant]
     Active Substance: BISOPROLOL
     Dosage: 5 MG, QD
     Route: 065
  6. ROSUVASTATIN. [Concomitant]
     Active Substance: ROSUVASTATIN
     Dosage: 5 MG, QD
     Route: 065
  7. ENALAPRIL [Concomitant]
     Active Substance: ENALAPRIL
     Dosage: 10 MG, QID (2 TABLETS 12/12H)
     Route: 065
  8. ALOGLIPTIN. [Concomitant]
     Active Substance: ALOGLIPTIN
     Dosage: UNK (1 CP / DAY)
     Route: 065
  9. INDAPAMIDE. [Concomitant]
     Active Substance: INDAPAMIDE
     Dosage: 1CP / DAY
     Route: 065
  10. ASA [Concomitant]
     Active Substance: ASPIRIN
     Dosage: 100 MG, QD
     Route: 065

REACTIONS (4)
  - Hypoglycaemia [Unknown]
  - Diabetic retinopathy [Unknown]
  - Hyperglycaemia [Unknown]
  - Diabetic retinal oedema [Unknown]
